FAERS Safety Report 20156524 (Version 1)
Quarter: 2021Q4

REPORT INFORMATION
  Report Type: Spontaneous
  Country: US (occurrence: None)
  Receive Date: 20211207
  Receipt Date: 20211207
  Transmission Date: 20220303
  Serious: No
  Sender: FDA-Public Use
  Company Number: None

PATIENT
  Sex: Male

DRUGS (1)
  1. HUMIRA [Suspect]
     Active Substance: ADALIMUMAB
     Indication: Ankylosing spondylitis
     Dosage: OTHER QUANTITY : 40M/0.8ML ;?OTHER FREQUENCY : EVERY 14 DAYS;?
     Route: 030
     Dates: start: 2013

REACTIONS (3)
  - Mental status changes [None]
  - Soliloquy [None]
  - Asocial behaviour [None]
